FAERS Safety Report 16010603 (Version 1)
Quarter: 2019Q1

REPORT INFORMATION
  Report Type: Other
  Country: FR (occurrence: FR)
  Receive Date: 20190225
  Receipt Date: 20190225
  Transmission Date: 20190418
  Serious: Yes (Hospitalization, Other)
  Sender: FDA-Public Use
  Company Number: FR-APOTEX-2019AP008124

PATIENT
  Age: 50 Year
  Sex: Female

DRUGS (12)
  1. LOXAPAC                            /00401801/ [Suspect]
     Active Substance: LOXAPINE
     Indication: PRODUCT USED FOR UNKNOWN INDICATION
     Dosage: 300 MG, PER DAY
     Route: 048
     Dates: start: 20150711, end: 20150815
  2. VALIUM [Suspect]
     Active Substance: DIAZEPAM
     Dosage: 5 MG, QD (5 MG 1DF QD)
     Route: 048
     Dates: start: 20150711, end: 20150815
  3. ZOLPIDEM [Concomitant]
     Active Substance: ZOLPIDEM\ZOLPIDEM TARTRATE
     Indication: PRODUCT USED FOR UNKNOWN INDICATION
     Dosage: 1 DF, PRN
     Route: 048
     Dates: start: 20150711, end: 20150815
  4. ZOPICLONE [Suspect]
     Active Substance: ZOPICLONE
     Indication: PRODUCT USED FOR UNKNOWN INDICATION
     Dosage: 1 DF, PRN (1 DF/DAY IN NEED)
     Route: 065
     Dates: start: 20150711, end: 20150815
  5. ABILIFY [Suspect]
     Active Substance: ARIPIPRAZOLE
     Indication: PRODUCT USED FOR UNKNOWN INDICATION
     Dosage: 15 MG, BID
     Route: 048
     Dates: start: 20150711
  6. ABILIFY [Suspect]
     Active Substance: ARIPIPRAZOLE
     Dosage: 20 MG, BID
     Route: 048
     Dates: start: 20150711, end: 20150813
  7. LOXAPAC                            /00401801/ [Suspect]
     Active Substance: LOXAPINE
     Indication: PRODUCT USED FOR UNKNOWN INDICATION
     Dosage: 1 DF, PER DAY (50, 2 INJECTIONS PER DAY)
     Route: 065
     Dates: start: 20150711, end: 20150815
  8. OLANZAPINE. [Suspect]
     Active Substance: OLANZAPINE
     Indication: PRODUCT USED FOR UNKNOWN INDICATION
     Dosage: 10 MG, QD
     Route: 048
     Dates: start: 20150711, end: 20150811
  9. ABILIFY MAINTENA [Suspect]
     Active Substance: ARIPIPRAZOLE
     Indication: PRODUCT USED FOR UNKNOWN INDICATION
     Dosage: 400 MG, Q.M.T. (400 MG, QM)
     Route: 030
     Dates: start: 20150730
  10. VALIUM [Suspect]
     Active Substance: DIAZEPAM
     Indication: PRODUCT USED FOR UNKNOWN INDICATION
     Dosage: 1 DF, Q.6H
     Route: 048
     Dates: start: 20150711, end: 20150815
  11. ABILIFY [Suspect]
     Active Substance: ARIPIPRAZOLE
     Dosage: 20 MG, BID (TABLET STRENGTH: 10 MG)
     Route: 048
     Dates: start: 20150811, end: 20150813
  12. ZOLPIDEM [Concomitant]
     Active Substance: ZOLPIDEM\ZOLPIDEM TARTRATE
     Dosage: UNK, PRN (UNK, UPON NEED)
     Route: 048
     Dates: start: 20150825

REACTIONS (8)
  - Erysipelas [Unknown]
  - Pyelonephritis [Unknown]
  - Skin injury [Unknown]
  - Off label use [Unknown]
  - Adverse event [Unknown]
  - Product use issue [Unknown]
  - Pancytopenia [Recovered/Resolved]
  - Septic shock [Unknown]

NARRATIVE: CASE EVENT DATE: 201508
